FAERS Safety Report 7624873-4 (Version None)
Quarter: 2011Q3

REPORT INFORMATION
  Report Type: 
  Country: None (occurrence: None)
  Receive Date: 20110720
  Receipt Date: 20110711
  Transmission Date: 20111222
  Serious: Yes (Hospitalization, Disabling)
  Sender: FDA-Public Use
  Company Number: US-ASTRAZENECA-2011SE34462

PATIENT
  Age: 58 Year
  Sex: Male
  Weight: 54.4 kg

DRUGS (9)
  1. SEROQUEL [Suspect]
     Indication: SLEEP DISORDER
     Route: 048
     Dates: start: 20060101
  2. GENERIC CELEXA [Concomitant]
     Indication: DEPRESSION
  3. SEROQUEL [Suspect]
     Indication: DEPRESSION
     Route: 048
     Dates: start: 20060101
  4. SEROQUEL [Suspect]
     Indication: BORDERLINE PERSONALITY DISORDER
     Route: 048
     Dates: start: 20060101
  5. TRAMADOL HCL [Concomitant]
     Indication: PAIN
     Dosage: PRN
  6. CRESTOR [Suspect]
     Indication: BLOOD CHOLESTEROL ABNORMAL
     Route: 048
  7. ASPIRIN [Concomitant]
  8. KLONOPIN [Concomitant]
  9. ASPIRIN [Concomitant]

REACTIONS (13)
  - SUICIDAL IDEATION [None]
  - WEIGHT DECREASED [None]
  - OFF LABEL USE [None]
  - CHEST PAIN [None]
  - DEPRESSION [None]
  - INAPPROPRIATE SCHEDULE OF DRUG ADMINISTRATION [None]
  - DRUG DOSE OMISSION [None]
  - WRONG DRUG ADMINISTERED [None]
  - INSOMNIA [None]
  - POST-TRAUMATIC PAIN [None]
  - HEAD INJURY [None]
  - ANXIETY [None]
  - PERSONALITY CHANGE [None]
